FAERS Safety Report 6530677-6 (Version None)
Quarter: 2010Q1

REPORT INFORMATION
  Report Type: 
  Country: None (occurrence: None)
  Receive Date: 20100108
  Receipt Date: 20081114
  Transmission Date: 20100710
  Serious: No
  Sender: FDA-Public Use
  Company Number: A0757038A

PATIENT
  Sex: Male

DRUGS (2)
  1. LOVAZA [Suspect]
     Dosage: 4G PER DAY
     Route: 048
  2. CRESTOR [Concomitant]
     Dates: start: 20060101

REACTIONS (1)
  - BLOOD CREATINE PHOSPHOKINASE INCREASED [None]
